FAERS Safety Report 10467146 (Version 3)
Quarter: 2014Q4

REPORT INFORMATION
  Report Type: Spontaneous
  Country: US (occurrence: US)
  Receive Date: 20140922
  Receipt Date: 20141007
  Transmission Date: 20150528
  Serious: No
  Sender: FDA-Public Use
  Company Number: US-PFIZER INC-2014261230

PATIENT
  Sex: Female

DRUGS (3)
  1. MUCINEX [Suspect]
     Active Substance: GUAIFENESIN
     Indication: COUGH
  2. MUCINEX [Suspect]
     Active Substance: GUAIFENESIN
     Indication: NASOPHARYNGITIS
     Dosage: UNK
  3. LYRICA [Suspect]
     Active Substance: PREGABALIN
     Dosage: UNK
     Dates: start: 20140917

REACTIONS (2)
  - Euphoric mood [Unknown]
  - Dizziness [Unknown]

NARRATIVE: CASE EVENT DATE: 201409
